FAERS Safety Report 10168624 (Version 1)
Quarter: 2014Q2

REPORT INFORMATION
  Report Type: Spontaneous
  Country: GB (occurrence: GB)
  Receive Date: 20140513
  Receipt Date: 20140513
  Transmission Date: 20141212
  Serious: Yes (Disabling)
  Sender: FDA-Public Use
  Company Number: GB-DRREDDYS-GER/UKI/14/0040230

PATIENT
  Age: 76 Year
  Sex: Male
  Weight: 80.6 kg

DRUGS (6)
  1. RISPERIDONE [Suspect]
     Indication: PRODUCT USED FOR UNKNOWN INDICATION
     Route: 048
     Dates: start: 20140110, end: 20140214
  2. ATORVASTATIN [Concomitant]
     Indication: PRODUCT USED FOR UNKNOWN INDICATION
     Route: 048
     Dates: start: 20140110
  3. DILTIAZEM [Concomitant]
     Indication: PRODUCT USED FOR UNKNOWN INDICATION
     Route: 048
     Dates: start: 20140110, end: 20140125
  4. LORAZEPAM [Concomitant]
     Indication: AGITATION
     Route: 048
     Dates: start: 20140209, end: 20140305
  5. MIRTAZAPINE [Concomitant]
     Indication: DEPRESSION
     Route: 048
     Dates: start: 20140224, end: 20140302
  6. SERTRALINE [Concomitant]
     Indication: DEPRESSION
     Route: 048
     Dates: start: 20140318

REACTIONS (7)
  - Extrapyramidal disorder [Recovered/Resolved]
  - Catatonia [Recovered/Resolved]
  - Dyskinesia [Recovered/Resolved]
  - Drug hypersensitivity [Recovered/Resolved]
  - Movement disorder [Recovered/Resolved]
  - Posture abnormal [Recovered/Resolved]
  - Muscle twitching [Recovered/Resolved]
